FAERS Safety Report 4314799-6 (Version None)
Quarter: 2004Q1

REPORT INFORMATION
  Report Type: 
  Country: None (occurrence: None)
  Receive Date: 20040308
  Receipt Date: 20040226
  Transmission Date: 20041129
  Serious: Yes (Hospitalization)
  Sender: FDA-Public Use
  Company Number: FRWYE291610SEP03

PATIENT
  Age: 69 Year
  Sex: Female

DRUGS (7)
  1. EFFEXOR [Suspect]
     Route: 048
     Dates: start: 20030601, end: 20030601
  2. EFFEXOR [Suspect]
     Route: 048
     Dates: start: 20030724, end: 20030808
  3. NOCTRAN 10 (ACEPROMAZINE/ACEPROMETAZINE/ CLORAZEPATE DIPOTASSIUM) [Concomitant]
  4. LEXOMIL (BROMAZEPAM) [Concomitant]
  5. GLYBURIDE [Concomitant]
  6. GLUCOPHAGE [Concomitant]
  7. LEVOTHYROXINE SODIUM [Concomitant]

REACTIONS (9)
  - ATAXIA [None]
  - CEREBROVASCULAR ACCIDENT [None]
  - COMA [None]
  - DIABETES MELLITUS INADEQUATE CONTROL [None]
  - DISORIENTATION [None]
  - QUADRIPLEGIA [None]
  - SEROTONIN SYNDROME [None]
  - STAPHYLOCOCCAL INFECTION [None]
  - URINARY TRACT INFECTION BACTERIAL [None]
